FAERS Safety Report 9134283 (Version 1)
Quarter: 2013Q1

REPORT INFORMATION
  Report Type: Spontaneous
  Country: IN (occurrence: IN)
  Receive Date: 20130304
  Receipt Date: 20130304
  Transmission Date: 20140127
  Serious: Yes (Death)
  Sender: FDA-Public Use
  Company Number: IN-JNJFOC-20130211941

PATIENT
  Sex: 0

DRUGS (4)
  1. DOXORUBICIN [Suspect]
     Indication: CLEAR CELL SARCOMA OF THE KIDNEY
     Route: 042
  2. VINCRISTINE [Suspect]
     Indication: CLEAR CELL SARCOMA OF THE KIDNEY
     Route: 065
  3. CYCLOPHOSPHAMIDE [Suspect]
     Indication: CLEAR CELL SARCOMA OF THE KIDNEY
     Route: 065
  4. ETOPOSIDE [Suspect]
     Indication: CLEAR CELL SARCOMA OF THE KIDNEY
     Route: 065

REACTIONS (2)
  - Death [Fatal]
  - Off label use [Unknown]
